FAERS Safety Report 8923737 (Version 2)
Quarter: 2013Q1

REPORT INFORMATION
  Report Type: Spontaneous
  Country: US (occurrence: US)
  Receive Date: 20121126
  Receipt Date: 20130212
  Transmission Date: 20140127
  Serious: Yes (Life-Threatening, Hospitalization, Disabling, Other)
  Sender: FDA-Public Use
  Company Number: US-ENDO PHARMACEUTICALS INC.-PERC20120136

PATIENT
  Age: 56 None
  Sex: Female
  Weight: 75.82 kg

DRUGS (6)
  1. PERCOCET [Suspect]
     Indication: PAIN
     Dosage: UNKNOWN
     Route: 065
     Dates: start: 20120816, end: 201208
  2. PERCOCET [Suspect]
     Dosage: 40/1300 MG
     Route: 048
     Dates: start: 2010, end: 20120816
  3. MORPHINE SULFATE [Suspect]
     Indication: BREAKTHROUGH PAIN
     Dosage: UNKNOWN
     Route: 065
     Dates: start: 20120816, end: 201208
  4. MORPHINE SULFATE [Suspect]
     Route: 065
     Dates: start: 2010, end: 20120816
  5. ALCOHOL [Suspect]
     Indication: ALCOHOL ABUSE
     Dosage: UNKNOWN
     Route: 065
  6. COCAINE [Suspect]
     Indication: DRUG ABUSE
     Dosage: UNKNOWN
     Route: 065

REACTIONS (6)
  - Cerebrovascular accident [Recovering/Resolving]
  - Pneumonia aspiration [Recovered/Resolved]
  - Drug interaction [Recovered/Resolved]
  - Suicide attempt [Recovered/Resolved]
  - Drug abuse [Unknown]
  - Intentional overdose [None]
